FAERS Safety Report 12378941 (Version 1)
Quarter: 2016Q2

REPORT INFORMATION
  Report Type: Spontaneous
  Country: US (occurrence: US)
  Receive Date: 20160517
  Receipt Date: 20160517
  Transmission Date: 20160815
  Serious: Yes (Other)
  Sender: FDA-Public Use
  Company Number: ADR-2015-01024

PATIENT
  Age: 67 Year
  Sex: Female

DRUGS (2)
  1. BACLOFEN. [Suspect]
     Active Substance: BACLOFEN
     Route: 048
  2. BACLOFEN. [Suspect]
     Active Substance: BACLOFEN
     Dosage: 502.2 MCG/DAY
     Route: 037
     Dates: start: 2002

REACTIONS (2)
  - Musculoskeletal stiffness [Unknown]
  - Confusional state [Unknown]

NARRATIVE: CASE EVENT DATE: 201505
